FAERS Safety Report 4702980-3 (Version None)
Quarter: 2005Q2

REPORT INFORMATION
  Report Type: 
  Country: None (occurrence: None)
  Receive Date: 20050629
  Receipt Date: 20050602
  Transmission Date: 20051028
  Serious: Yes (Hospitalization)
  Sender: FDA-Public Use
  Company Number: JP-ROCHE-406872

PATIENT
  Age: 35 Year
  Sex: Male

DRUGS (8)
  1. TAMIFLU [Suspect]
     Route: 048
     Dates: start: 20050420, end: 20050420
  2. TAMIFLU [Suspect]
     Route: 048
     Dates: start: 20050421, end: 20050421
  3. COLDRIN [Suspect]
     Indication: DRUG USE FOR UNKNOWN INDICATION
     Route: 048
     Dates: start: 20050420, end: 20050421
  4. CEFSPAN [Suspect]
     Route: 048
     Dates: start: 20050427
  5. TAKEPRON [Concomitant]
     Indication: DRUG USE FOR UNKNOWN INDICATION
     Route: 048
     Dates: start: 20000107
  6. ALLOID [Concomitant]
     Indication: DRUG USE FOR UNKNOWN INDICATION
     Route: 048
     Dates: start: 20030114
  7. BROTIZOLAM [Concomitant]
     Indication: DRUG USE FOR UNKNOWN INDICATION
     Route: 048
     Dates: start: 20000424
  8. BENZALIN [Concomitant]
     Indication: DRUG USE FOR UNKNOWN INDICATION
     Route: 048
     Dates: start: 20030414

REACTIONS (2)
  - HEPATIC FUNCTION ABNORMAL [None]
  - URTICARIA [None]
